FAERS Safety Report 17707670 (Version 1)
Quarter: 2020Q2

REPORT INFORMATION
  Report Type: Spontaneous
  Country: US (occurrence: US)
  Receive Date: 20200424
  Receipt Date: 20200424
  Transmission Date: 20200714
  Serious: Yes (Death, Other)
  Sender: FDA-Public Use
  Company Number: US-NAPPMUNDI-USA-2020-0151988

PATIENT

DRUGS (8)
  1. OXYCONTIN [Suspect]
     Active Substance: OXYCODONE HYDROCHLORIDE
     Indication: BACK INJURY
     Dosage: 30 MG, INTIALLY ORAL THEN INJECTED
     Route: 048
     Dates: start: 2011
  2. OXYCONTIN [Suspect]
     Active Substance: OXYCODONE HYDROCHLORIDE
     Indication: INTERVERTEBRAL DISC PROTRUSION
  3. SOMA [Suspect]
     Active Substance: CARISOPRODOL
     Indication: BACK INJURY
     Dosage: UNK
     Route: 065
     Dates: start: 2011
  4. MORPHINE SULFATE (SIMILAR TO NDA 19-516) [Suspect]
     Active Substance: MORPHINE SULFATE
     Indication: INTERVERTEBRAL DISC PROTRUSION
  5. XANAX [Suspect]
     Active Substance: ALPRAZOLAM
     Indication: BACK INJURY
     Dosage: UNK
     Route: 065
     Dates: start: 2011
  6. SOMA [Suspect]
     Active Substance: CARISOPRODOL
     Indication: INTERVERTEBRAL DISC PROTRUSION
  7. MORPHINE SULFATE (SIMILAR TO NDA 19-516) [Suspect]
     Active Substance: MORPHINE SULFATE
     Indication: BACK INJURY
     Dosage: UNK
     Route: 065
     Dates: start: 2011
  8. XANAX [Suspect]
     Active Substance: ALPRAZOLAM
     Indication: INTERVERTEBRAL DISC PROTRUSION

REACTIONS (7)
  - Overdose [Recovered/Resolved]
  - Drug abuse [Recovered/Resolved]
  - Drug dependence [Recovered/Resolved]
  - Death [Fatal]
  - Diarrhoea [Recovered/Resolved]
  - General physical health deterioration [Recovered/Resolved]
  - Impaired driving ability [Recovered/Resolved]

NARRATIVE: CASE EVENT DATE: 2011
